FAERS Safety Report 12082299 (Version 1)
Quarter: 2016Q1

REPORT INFORMATION
  Report Type: Spontaneous
  Country: GR (occurrence: GR)
  Receive Date: 20160217
  Receipt Date: 20160217
  Transmission Date: 20160526
  Serious: Yes (Death)
  Sender: FDA-Public Use
  Company Number: GR-009507513-1602GRC007001

PATIENT
  Age: 67 Year
  Sex: Female
  Weight: 71 kg

DRUGS (10)
  1. LOBIVON [Concomitant]
     Active Substance: NEBIVOLOL HYDROCHLORIDE
  2. SEROPRAM [Concomitant]
     Active Substance: CITALOPRAM HYDROBROMIDE
  3. DUROGESIC [Concomitant]
     Active Substance: FENTANYL
  4. DEPON [Concomitant]
     Active Substance: ACETAMINOPHEN
  5. KEYTRUDA [Suspect]
     Active Substance: PEMBROLIZUMAB
     Dosage: 2 MG/KG, UNK
     Route: 042
     Dates: start: 20151113, end: 20151113
  6. CLEXANE (ENOXAPARIN SODIUM) [Concomitant]
     Active Substance: ENOXAPARIN SODIUM
  7. TRAMAL [Concomitant]
     Active Substance: TRAMADOL
  8. AVELOX [Concomitant]
     Active Substance: MOXIFLOXACIN HYDROCHLORIDE
  9. KEYTRUDA [Suspect]
     Active Substance: PEMBROLIZUMAB
     Indication: LUNG CANCER METASTATIC
     Dosage: 2 MG/KG, UNK
     Route: 042
     Dates: start: 20151022, end: 20151022
  10. CO-DIOVAN [Concomitant]
     Active Substance: HYDROCHLOROTHIAZIDE\VALSARTAN

REACTIONS (2)
  - Pneumonitis [Fatal]
  - Off label use [Unknown]

NARRATIVE: CASE EVENT DATE: 20151022
